FAERS Safety Report 24930267 (Version 3)
Quarter: 2025Q2

REPORT INFORMATION
  Report Type: Spontaneous
  Country: US (occurrence: US)
  Receive Date: 20250205
  Receipt Date: 20250513
  Transmission Date: 20250716
  Serious: Yes (Other)
  Sender: PFIZER
  Company Number: US-PFIZER INC-202400005847

PATIENT
  Age: 69 Year
  Sex: Female
  Weight: 112.94 kg

DRUGS (1)
  1. XELJANZ XR [Suspect]
     Active Substance: TOFACITINIB CITRATE
     Indication: Rheumatoid arthritis
     Dosage: 11MG ONCE A DAY
     Route: 048
     Dates: start: 2020

REACTIONS (6)
  - Mental impairment [Not Recovered/Not Resolved]
  - Disorganised speech [Not Recovered/Not Resolved]
  - Emotional distress [Unknown]
  - Memory impairment [Unknown]
  - Dysphemia [Unknown]
  - Eye disorder [Unknown]

NARRATIVE: CASE EVENT DATE: 20220101
